FAERS Safety Report 6817996-0 (Version None)
Quarter: 2010Q3

REPORT INFORMATION
  Report Type: 
  Country: None (occurrence: None)
  Receive Date: 20100706
  Receipt Date: 20100625
  Transmission Date: 20110219
  Serious: Yes (Congenital Anomaly)
  Sender: FDA-Public Use
  Company Number: GXKR2010DK07133

PATIENT

DRUGS (1)
  1. PAROXETINE (NGX) [Suspect]
     Dosage: MATERNAL DOSE: 20 MG, QD
     Route: 064

REACTIONS (2)
  - CARCINOGENIC EFFECT IN OFFSPRING [None]
  - DRUG EXPOSURE DURING PREGNANCY [None]
